FAERS Safety Report 16598254 (Version 3)
Quarter: 2019Q3

REPORT INFORMATION
  Report Type: Spontaneous
  Country: ES (occurrence: ES)
  Receive Date: 20190719
  Receipt Date: 20190910
  Transmission Date: 20191004
  Serious: Yes (Other)
  Sender: FDA-Public Use
  Company Number: ES-SA-2019SA193034

PATIENT
  Age: 25 Year
  Sex: Female
  Weight: 50 kg

DRUGS (1)
  1. AUBAGIO [Suspect]
     Active Substance: TERIFLUNOMIDE
     Indication: RELAPSING-REMITTING MULTIPLE SCLEROSIS
     Dosage: UNK
     Route: 048
     Dates: start: 201803, end: 201907

REACTIONS (4)
  - Eye haemorrhage [Recovering/Resolving]
  - Papillophlebitis [Recovering/Resolving]
  - Blindness unilateral [Recovering/Resolving]
  - Multiple sclerosis relapse [Unknown]

NARRATIVE: CASE EVENT DATE: 20190714
